FAERS Safety Report 6121598-1 (Version None)
Quarter: 2009Q1

REPORT INFORMATION
  Report Type: 
  Country: None (occurrence: None)
  Receive Date: 20090317
  Receipt Date: 20090312
  Transmission Date: 20090719
  Serious: Yes (Life-Threatening, Hospitalization)
  Sender: FDA-Public Use
  Company Number: US-KINGPHARMUSA00001-K200900279

PATIENT
  Age: 59 Year
  Sex: Female

DRUGS (6)
  1. ALTACE [Suspect]
     Dosage: 10 MG, QD
     Route: 048
     Dates: start: 20080815, end: 20080926
  2. RISPERDAL CONSTA [Suspect]
     Dosage: 50 MG, QD
     Route: 048
     Dates: start: 20070101, end: 20080912
  3. EUNERPAN [Suspect]
     Dosage: 25 MG, QD
     Route: 048
  4. NORVASC [Suspect]
     Dosage: 5 MG, QD
     Route: 048
     Dates: start: 20080815, end: 20080926
  5. TRIMIPRAMIN-NEURAXPHARM [Concomitant]
     Dosage: 75 MG, UNK
     Route: 048
  6. TEMAZEPAM [Concomitant]
     Dosage: 20 MG, UNK
     Route: 048

REACTIONS (6)
  - DYSPNOEA [None]
  - HYPERSENSITIVITY [None]
  - LARYNGEAL OEDEMA [None]
  - PHARYNGEAL OEDEMA [None]
  - PNEUMONIA [None]
  - SUICIDE ATTEMPT [None]
